FAERS Safety Report 17624263 (Version 2)
Quarter: 2020Q4

REPORT INFORMATION
  Report Type: Spontaneous
  Country: DE (occurrence: DE)
  Receive Date: 20200403
  Receipt Date: 20201201
  Transmission Date: 20210113
  Serious: Yes (Other)
  Sender: FDA-Public Use
  Company Number: DE-ASCEND THERAPEUTICS US, LLC-2082296

PATIENT
  Age: 51 Year
  Sex: Female

DRUGS (4)
  1. ESTROGEL [Suspect]
     Active Substance: ESTRADIOL
     Indication: MENOPAUSAL SYMPTOMS
     Route: 062
     Dates: start: 201906
  2. ESTROGEL [Suspect]
     Active Substance: ESTRADIOL
  3. UTROGEST (PROGESTERONE) (CAPSULE, SOFT) UNKNOWN [Suspect]
     Active Substance: PROGESTERONE
     Route: 048
     Dates: start: 201906, end: 2020
  4. GYNOKADIN DOSIERGEL (ESTRADIOL HEMYDRATE) (GEL) [Suspect]
     Active Substance: ESTRADIOL HEMIHYDRATE
     Route: 062
     Dates: start: 201906

REACTIONS (2)
  - Atrial fibrillation [Unknown]
  - Drug intolerance [Recovered/Resolved]

NARRATIVE: CASE EVENT DATE: 201911
